FAERS Safety Report 7214795-5 (Version None)
Quarter: 2011Q1

REPORT INFORMATION
  Report Type: 
  Country: None (occurrence: None)
  Receive Date: 20110107
  Receipt Date: 20100226
  Transmission Date: 20110831
  Serious: No
  Sender: FDA-Public Use
  Company Number: A0847044A

PATIENT
  Age: 52 Year
  Sex: Female

DRUGS (2)
  1. LOVAZA [Suspect]
     Dosage: 2G TWICE PER DAY
     Route: 048
     Dates: start: 20090701, end: 20100115
  2. FLOVENT [Concomitant]
     Dosage: 4PUFF PER DAY
     Route: 055
     Dates: start: 20091001, end: 20091201

REACTIONS (4)
  - BURNING SENSATION [None]
  - DYSGEUSIA [None]
  - BACK PAIN [None]
  - DISCOMFORT [None]
